FAERS Safety Report 6773510-X (Version None)
Quarter: 2010Q2

REPORT INFORMATION
  Report Type: 
  Country: None (occurrence: None)
  Receive Date: 20100616
  Receipt Date: 20100305
  Transmission Date: 20101027
  Serious: No
  Sender: FDA-Public Use
  Company Number: US-ABBOTT-10P-163-0631238-00

PATIENT
  Sex: Male
  Weight: 61.29 kg

DRUGS (5)
  1. TRILIPIX [Suspect]
     Indication: BLOOD CHOLESTEROL INCREASED
     Route: 048
     Dates: start: 20100225, end: 20100301
  2. TAMBOCOR [Concomitant]
     Indication: ARRHYTHMIA PROPHYLAXIS
     Route: 048
  3. TOPROL-XL [Concomitant]
     Indication: HYPERTENSION
     Dosage: 1/2 TAB, DAILY
     Route: 048
  4. PRILOSEC [Concomitant]
     Indication: DRUG USE FOR UNKNOWN INDICATION
     Route: 048
  5. ASPIRIN [Concomitant]
     Indication: CARDIAC DISORDER
     Route: 048

REACTIONS (6)
  - ABDOMINAL DISTENSION [None]
  - ALOPECIA [None]
  - BACK PAIN [None]
  - DYSPEPSIA [None]
  - POLLAKIURIA [None]
  - RENAL PAIN [None]
